FAERS Safety Report 6490254-2 (Version None)
Quarter: 2009Q4

REPORT INFORMATION
  Report Type: 
  Country: None (occurrence: None)
  Receive Date: 20091211
  Receipt Date: 20091202
  Transmission Date: 20100525
  Serious: Yes (Hospitalization)
  Sender: FDA-Public Use
  Company Number: US-ASTRAZENECA-2009SE30081

PATIENT
  Age: 89 Year
  Sex: Female
  Weight: 53.5 kg

DRUGS (7)
  1. CRESTOR [Suspect]
     Route: 048
  2. DRONEDARONE [Interacting]
     Indication: ATRIAL FIBRILLATION
     Route: 048
     Dates: start: 20090922
  3. NEBIVOLOL [Concomitant]
  4. FUROSEMIDE [Concomitant]
  5. CELEXA [Concomitant]
  6. ADVAIR DISKUS 100/50 [Concomitant]
  7. COUMADIN [Concomitant]

REACTIONS (2)
  - DRUG INTERACTION [None]
  - RHABDOMYOLYSIS [None]
